FAERS Safety Report 8502063-0 (Version None)
Quarter: 2012Q3

REPORT INFORMATION
  Report Type: 
  Country: None (occurrence: None)
  Receive Date: 20120711
  Receipt Date: 20120621
  Transmission Date: 20120928
  Serious: No
  Sender: FDA-Public Use
  Company Number: CA-JNJFOC-20120611948

PATIENT
  Sex: Female
  Weight: 96 kg

DRUGS (7)
  1. CRESTOR [Concomitant]
     Route: 065
  2. IMURAN [Concomitant]
     Route: 065
  3. RANITIDINE [Concomitant]
     Route: 065
  4. METHOTREXATE [Concomitant]
     Route: 065
  5. FOLIC ACID [Concomitant]
     Route: 065
  6. REMICADE [Suspect]
     Indication: PSORIATIC ARTHROPATHY
     Route: 042
     Dates: start: 20060512
  7. REMICADE [Suspect]
     Dosage: 52 ND INFUSION
     Route: 042
     Dates: start: 20120510

REACTIONS (2)
  - CYSTITIS [None]
  - URINARY TRACT INFECTION [None]
